FAERS Safety Report 18150458 (Version 1)
Quarter: 2020Q3

REPORT INFORMATION
  Report Type: Spontaneous
  Country: US (occurrence: US)
  Receive Date: 20200814
  Receipt Date: 20200814
  Transmission Date: 20201103
  Serious: Yes (Other)
  Sender: FDA-Public Use
  Company Number: US-CELGENEUS-USA-20200802727

PATIENT
  Sex: Female

DRUGS (5)
  1. THALOMID [Suspect]
     Active Substance: THALIDOMIDE
     Dosage: 50 MILLIGRAM
     Route: 048
     Dates: start: 201612
  2. THALOMID [Suspect]
     Active Substance: THALIDOMIDE
     Dosage: 100 MILLIGRAM
     Route: 048
     Dates: start: 20200611
  3. THALOMID [Suspect]
     Active Substance: THALIDOMIDE
     Dosage: 50?100 MILIGRAM
     Route: 048
     Dates: start: 201901
  4. THALOMID [Suspect]
     Active Substance: THALIDOMIDE
     Dosage: 100 MILLIGRAM
     Route: 048
     Dates: start: 201909
  5. THALOMID [Suspect]
     Active Substance: THALIDOMIDE
     Indication: PLASMA CELL MYELOMA
     Dosage: 100 MILLIGRAM
     Route: 048
     Dates: start: 201606

REACTIONS (1)
  - Neuropathy peripheral [Recovering/Resolving]
